FAERS Safety Report 6177430-3 (Version None)
Quarter: 2009Q2

REPORT INFORMATION
  Report Type: 
  Country: None (occurrence: None)
  Receive Date: 20090501
  Receipt Date: 20090501
  Transmission Date: 20091009
  Serious: Yes (Hospitalization)
  Sender: FDA-Public Use
  Company Number: None

PATIENT
  Sex: Male
  Weight: 58.5 kg

DRUGS (2)
  1. CITARABIN [Suspect]
     Dosage: 37920 MG
  2. LESTAURTINIB [Suspect]
     Dosage: 4257 MG

REACTIONS (12)
  - ABDOMINAL PAIN UPPER [None]
  - CHLOROMA [None]
  - CLOSTRIDIAL INFECTION [None]
  - ENTEROCOCCAL INFECTION [None]
  - INTRASPINAL ABSCESS [None]
  - NEUTROPENIA [None]
  - OESOPHAGEAL CANDIDIASIS [None]
  - PAIN IN EXTREMITY [None]
  - PERICARDITIS [None]
  - RESPIRATORY DISTRESS [None]
  - RESPIRATORY TRACT INFECTION FUNGAL [None]
  - SUBDURAL HAEMATOMA [None]
